FAERS Safety Report 9263775 (Version 2)
Quarter: 2014Q1

REPORT INFORMATION
  Report Type: Spontaneous
  Country: US (occurrence: None)
  Receive Date: 20121212
  Receipt Date: 20130314
  Transmission Date: 20141002
  Serious: No
  Sender: FDA-Public Use
  Company Number: 1211USA002410

PATIENT
  Age: 55 Year
  Sex: Male

DRUGS (4)
  1. VICTRELIS [Suspect]
     Indication: HEPATITIS C
     Route: 048
     Dates: start: 201205
  2. PEGASYS (PEGINTERFERON ALFA-2A) [Suspect]
     Dates: start: 201204
  3. RIBASPHERE (RIBAVIRIN) [Suspect]
     Route: 048
     Dates: start: 201204
  4. AMBIEN (ZOLPIDEM TARTRATE) [Concomitant]

REACTIONS (6)
  - Aggression [None]
  - Anger [None]
  - Irritability [None]
  - Fatigue [None]
  - Asthenia [None]
  - Aggression [None]
